FAERS Safety Report 7822597 (Version 3)
Quarter: 2013Q4

REPORT INFORMATION
  Report Type: Spontaneous
  Country: BR (occurrence: BR)
  Receive Date: 20110223
  Receipt Date: 20131122
  Transmission Date: 20140711
  Serious: Yes (Other)
  Sender: FDA-Public Use
  Company Number: BR-AMGEN-BRACT2011008808

PATIENT
  Age: 56 Year
  Sex: Female
  Weight: 69 kg

DRUGS (8)
  1. ENBREL [Suspect]
     Indication: RHEUMATOID ARTHRITIS
     Dosage: 25 MG, 1X/WEEK
     Route: 058
     Dates: start: 200702, end: 201309
  2. METHOTREXATE [Concomitant]
     Dosage: (STRENGTH 20MG)
  3. CALCIUM [Concomitant]
     Dosage: UNK, ONCE A DAY
  4. EPITEGEL [Concomitant]
     Dosage: UNK
  5. MICOSTATIN [Concomitant]
     Dosage: UNK
  6. OPTIVE [Concomitant]
     Dosage: 1 G, 2X/DAY
  7. ENDURA [Concomitant]
     Dosage: 1 G, 2X/DAY
  8. RESTASIS [Concomitant]
     Dosage: 1 G, 2X/DAY

REACTIONS (7)
  - Dyspnoea [Unknown]
  - Decreased immune responsiveness [Unknown]
  - Pharyngitis [Unknown]
  - Urinary tract infection [Unknown]
  - Candida infection [Unknown]
  - Herpes zoster [Unknown]
  - Drug ineffective [Unknown]
